FAERS Safety Report 8150601-2 (Version None)
Quarter: 2012Q1

REPORT INFORMATION
  Report Type: 
  Country: None (occurrence: None)
  Receive Date: 20120220
  Receipt Date: 20120210
  Transmission Date: 20120608
  Serious: Yes (Other)
  Sender: FDA-Public Use
  Company Number: PHEH2012US003580

PATIENT
  Sex: Male

DRUGS (1)
  1. AREDIA [Suspect]
     Dosage: UNK
     Dates: start: 20020101, end: 20021201

REACTIONS (6)
  - INTERVERTEBRAL DISC DISPLACEMENT [None]
  - SPINAL OSTEOARTHRITIS [None]
  - POLLAKIURIA [None]
  - DYSURIA [None]
  - DEAFNESS [None]
  - CHANGE OF BOWEL HABIT [None]
